FAERS Safety Report 9240168 (Version 1)
Quarter: 2013Q2

REPORT INFORMATION
  Report Type: Spontaneous
  Country: LU (occurrence: LU)
  Receive Date: 20130418
  Receipt Date: 20130418
  Transmission Date: 20140414
  Serious: Yes (Other)
  Sender: FDA-Public Use
  Company Number: LU-AMGEN-LUXSP2013016034

PATIENT
  Age: 19 Year
  Sex: Female

DRUGS (3)
  1. NPLATE [Suspect]
     Indication: PRODUCT USED FOR UNKNOWN INDICATION
  2. DEXAMETHASON                       /00016001/ [Concomitant]
  3. GAMMAGLOBULIN [Concomitant]

REACTIONS (6)
  - Vasculitis [Unknown]
  - Back pain [Unknown]
  - Haemorrhage [Unknown]
  - Hyperaesthesia [Unknown]
  - Platelet count abnormal [Unknown]
  - Headache [Unknown]
